FAERS Safety Report 13618540 (Version 2)
Quarter: 2017Q2

REPORT INFORMATION
  Report Type: Spontaneous
  Country: FR (occurrence: LU)
  Receive Date: 20170606
  Receipt Date: 20170613
  Transmission Date: 20170830
  Serious: Yes (Other)
  Sender: FDA-Public Use
  Company Number: FR-PFIZER INC-2017240741

PATIENT
  Age: 36 Year
  Sex: Male

DRUGS (5)
  1. SOLU-MEDROL [Suspect]
     Active Substance: METHYLPREDNISOLONE SODIUM SUCCINATE
     Indication: VESTIBULAR NEURONITIS
     Dosage: 125 MG, SINGLE
     Route: 042
     Dates: start: 20170401, end: 20170401
  2. APROVEL [Concomitant]
     Active Substance: IRBESARTAN
     Indication: HYPERTENSION
     Dosage: UNK
     Route: 048
  3. MEDROL [Suspect]
     Active Substance: METHYLPREDNISOLONE
     Indication: VESTIBULAR NEURONITIS
     Dosage: 40 MG, 1X/DAY
     Route: 048
     Dates: start: 20170402, end: 20170403
  4. PANTOMED [Suspect]
     Active Substance: DEXPANTHENOL
     Indication: VESTIBULAR NEURONITIS
     Dosage: UNK
     Route: 042
     Dates: start: 20170401, end: 20170406
  5. LITICAN /00690801/ [Concomitant]
     Active Substance: ALIZAPRIDE
     Indication: VESTIBULAR NEURONITIS
     Dosage: 50 MG, 3X/DAY
     Route: 042
     Dates: start: 20170401, end: 20170401

REACTIONS (3)
  - Electrocardiogram ST segment elevation [Unknown]
  - Blood creatine phosphokinase increased [Recovering/Resolving]
  - Hypertensive crisis [Unknown]

NARRATIVE: CASE EVENT DATE: 20170401
